FAERS Safety Report 26056404 (Version 1)
Quarter: 2025Q4

REPORT INFORMATION
  Report Type: Spontaneous
  Country: GB (occurrence: GB)
  Receive Date: 20251118
  Receipt Date: 20251118
  Transmission Date: 20260118
  Serious: Yes (Disabling, Other)
  Sender: ABBVIE
  Company Number: None

PATIENT
  Sex: Male

DRUGS (2)
  1. PREDNISOLONE [Suspect]
     Active Substance: PREDNISOLONE
     Indication: Product used for unknown indication
     Route: 065
  2. EUMOVATE [Suspect]
     Active Substance: CLOBETASONE BUTYRATE
     Indication: Product used for unknown indication
     Route: 065
     Dates: end: 20250701

REACTIONS (13)
  - Skin erosion [Recovering/Resolving]
  - Anxiety [Recovering/Resolving]
  - Feeling cold [Recovering/Resolving]
  - Fatigue [Recovering/Resolving]
  - Skin exfoliation [Recovering/Resolving]
  - Pain [Recovering/Resolving]
  - Dry skin [Recovering/Resolving]
  - Depression [Recovering/Resolving]
  - Skin burning sensation [Recovering/Resolving]
  - Mental fatigue [Recovering/Resolving]
  - Dry skin [Recovering/Resolving]
  - Steroid withdrawal syndrome [Unknown]
  - Skin discolouration [Unknown]

NARRATIVE: CASE EVENT DATE: 20250107
